FAERS Safety Report 5236973-7 (Version None)
Quarter: 2007Q1

REPORT INFORMATION
  Report Type: 
  Country: None (occurrence: None)
  Receive Date: 20070213
  Receipt Date: 20070131
  Transmission Date: 20070707
  Serious: Yes (Hospitalization, Other)
  Sender: FDA-Public Use
  Company Number: 2007GB00162

PATIENT
  Sex: Female

DRUGS (7)
  1. ARIMIDEX [Suspect]
     Indication: BREAST CANCER
     Route: 048
     Dates: start: 19981123, end: 20010329
  2. NOLVADEX [Suspect]
     Indication: BREAST CANCER
     Route: 048
     Dates: start: 19981123, end: 20010329
  3. CLONIDINE [Concomitant]
     Indication: HOT FLUSH
     Dates: start: 19991125
  4. LEVOTHYROXINE SODIUM [Concomitant]
     Indication: HYPOTHYROIDISM
     Route: 048
  5. AUGMENTIN '125' [Concomitant]
     Indication: URINARY TRACT INFECTION
     Dates: start: 19900104, end: 19990109
  6. FLUCONAZOLE [Concomitant]
     Indication: CANDIDIASIS
     Dates: start: 19990105, end: 19990109
  7. ADCORTYL [Concomitant]
     Indication: LICHEN PLANUS
     Dates: start: 20000715, end: 20001115

REACTIONS (1)
  - HIP ARTHROPLASTY [None]
